FAERS Safety Report 17438286 (Version 1)
Quarter: 2020Q1

REPORT INFORMATION
  Report Type: Report from Study
  Country: US (occurrence: US)
  Receive Date: 20200220
  Receipt Date: 20200220
  Transmission Date: 20200409
  Serious: Yes (Other)
  Sender: FDA-Public Use
  Company Number: US-ROCHE-2533313

PATIENT
  Sex: Female

DRUGS (3)
  1. ACTEMRA [Suspect]
     Active Substance: TOCILIZUMAB
     Indication: SCIATICA
  2. ACTEMRA [Suspect]
     Active Substance: TOCILIZUMAB
     Indication: SPINAL OSTEOARTHRITIS
  3. ACTEMRA [Suspect]
     Active Substance: TOCILIZUMAB
     Indication: RHEUMATOID ARTHRITIS
     Route: 058

REACTIONS (26)
  - Goitre [Unknown]
  - Hand deformity [Unknown]
  - Herpes zoster [Unknown]
  - Deep vein thrombosis [Unknown]
  - Blood homocysteine increased [Unknown]
  - Synovitis [Unknown]
  - Hypertension [Unknown]
  - Scoliosis [Unknown]
  - Hypercholesterolaemia [Unknown]
  - Liver function test increased [Unknown]
  - Skin hypertrophy [Unknown]
  - Osteoarthritis [Unknown]
  - Osteoporosis [Unknown]
  - Hepatic steatosis [Unknown]
  - Hyperhomocysteinaemia [Unknown]
  - Facial paralysis [Unknown]
  - Bartholin^s cyst [Unknown]
  - Hypokinesia [Unknown]
  - Paraesthesia [Unknown]
  - Back pain [Unknown]
  - Vitamin D deficiency [Unknown]
  - Atrophy [Unknown]
  - Glaucoma [Unknown]
  - Anti-cyclic citrullinated peptide antibody positive [Unknown]
  - Arthralgia [Unknown]
  - Conjunctivitis [Unknown]
